FAERS Safety Report 19239930 (Version 2)
Quarter: 2021Q3

REPORT INFORMATION
  Report Type: Spontaneous
  Country: US (occurrence: US)
  Receive Date: 20210510
  Receipt Date: 20210731
  Transmission Date: 20211014
  Serious: Yes (Other)
  Sender: FDA-Public Use
  Company Number: US-COOPERSURGICAL, INC.-US-2021CPS001217

PATIENT
  Age: 44 Year
  Sex: Female
  Weight: 99.86 kg

DRUGS (2)
  1. PARAGARD T 380A [Suspect]
     Active Substance: COPPER
     Indication: CONTRACEPTION
     Dosage: UNK
     Route: 015
     Dates: start: 20210226, end: 20210525
  2. PARAGARD T 380A [Suspect]
     Active Substance: COPPER
     Dosage: UNK
     Route: 015
     Dates: start: 20210525

REACTIONS (5)
  - Device expulsion [Recovered/Resolved]
  - Dysmenorrhoea [Unknown]
  - Heavy menstrual bleeding [Unknown]
  - Uterine leiomyoma [Not Recovered/Not Resolved]
  - Embedded device [Recovered/Resolved]

NARRATIVE: CASE EVENT DATE: 2021
